FAERS Safety Report 14676458 (Version 1)
Quarter: 2018Q1

REPORT INFORMATION
  Report Type: Spontaneous
  Country: US (occurrence: US)
  Receive Date: 20180323
  Receipt Date: 20180323
  Transmission Date: 20180509
  Serious: Yes (Death, Hospitalization, Other)
  Sender: FDA-Public Use
  Company Number: US-VIFOR (INTERNATIONAL) INC.-VIT-2016-02364

PATIENT
  Age: 75 Year
  Sex: Female

DRUGS (14)
  1. CREON [Concomitant]
     Active Substance: PANCRELIPASE AMYLASE\PANCRELIPASE LIPASE\PANCRELIPASE PROTEASE
  2. GLIMEPIRIDE. [Concomitant]
     Active Substance: GLIMEPIRIDE
  3. JANUVIA [Concomitant]
     Active Substance: SITAGLIPTIN PHOSPHATE
  4. RISEDRONATE SODIUM. [Concomitant]
     Active Substance: RISEDRONATE SODIUM
  5. CELECOXIB. [Concomitant]
     Active Substance: CELECOXIB
  6. LYRICA [Concomitant]
     Active Substance: PREGABALIN
  7. MECLOZINE HYDROCHLORIDE [Concomitant]
     Active Substance: MECLOZINE DIHYDROCHLORIDE
  8. OYSCO 500+D [Concomitant]
  9. VELTASSA [Suspect]
     Active Substance: PATIROMER
     Indication: HYPERKALAEMIA
     Route: 048
     Dates: start: 20160428, end: 20160430
  10. INVOKANA [Concomitant]
     Active Substance: CANAGLIFLOZIN
  11. CLOPIDOGREL BISULFATE. [Concomitant]
     Active Substance: CLOPIDOGREL BISULFATE
  12. CRESTOR [Concomitant]
     Active Substance: ROSUVASTATIN CALCIUM
  13. TRIBENZOR [Concomitant]
     Active Substance: AMLODIPINE BESYLATE\HYDROCHLOROTHIAZIDE\OLMESARTAN MEDOXOMIL
  14. DEXILANT [Concomitant]
     Active Substance: DEXLANSOPRAZOLE

REACTIONS (7)
  - Death [Fatal]
  - Dysuria [Not Recovered/Not Resolved]
  - Sluggishness [Not Recovered/Not Resolved]
  - Dizziness [Not Recovered/Not Resolved]
  - Fall [Not Recovered/Not Resolved]
  - Asthenia [Not Recovered/Not Resolved]
  - Condition aggravated [Not Recovered/Not Resolved]

NARRATIVE: CASE EVENT DATE: 2016
